FAERS Safety Report 20173327 (Version 1)
Quarter: 2021Q4

REPORT INFORMATION
  Report Type: Spontaneous
  Country: FR (occurrence: FR)
  Receive Date: 20211211
  Receipt Date: 20211211
  Transmission Date: 20220303
  Serious: Yes (Death)
  Sender: FDA-Public Use
  Company Number: None

PATIENT
  Age: 93 Year
  Sex: Female

DRUGS (1)
  1. GLIMEPIRIDE [Suspect]
     Active Substance: GLIMEPIRIDE
     Indication: Diabetes mellitus
     Dosage: 1 MG
     Route: 048

REACTIONS (3)
  - Encephalopathy [Fatal]
  - Hypoglycaemic coma [Fatal]
  - C-reactive protein increased [Fatal]

NARRATIVE: CASE EVENT DATE: 20211104
